FAERS Safety Report 8130848-1 (Version None)
Quarter: 2012Q1

REPORT INFORMATION
  Report Type: 
  Country: None (occurrence: None)
  Receive Date: 20120213
  Receipt Date: 20120207
  Transmission Date: 20120608
  Serious: No
  Sender: FDA-Public Use
  Company Number: US-PFIZER INC-K201100996

PATIENT
  Sex: Female

DRUGS (2)
  1. FLECTOR [Suspect]
     Indication: NEURALGIA
     Dosage: UNK PATCH, UNK
     Route: 061
  2. LIDODERM [Suspect]
     Indication: NEURALGIA
     Dosage: UNK PATCH, UNK
     Route: 061

REACTIONS (4)
  - FEELING JITTERY [None]
  - MALAISE [None]
  - CHILLS [None]
  - NAUSEA [None]
